FAERS Safety Report 7341184-5 (Version None)
Quarter: 2011Q1

REPORT INFORMATION
  Report Type: 
  Country: None (occurrence: None)
  Receive Date: 20110309
  Receipt Date: 20110307
  Transmission Date: 20110831
  Serious: Yes (Hospitalization)
  Sender: FDA-Public Use
  Company Number: B0704255A

PATIENT
  Sex: Male

DRUGS (10)
  1. JANUVIA [Concomitant]
     Route: 065
  2. METFORMIN [Concomitant]
     Route: 065
  3. DRIPTANE [Concomitant]
     Route: 065
  4. STILNOX [Concomitant]
     Route: 065
  5. MODOPAR [Concomitant]
     Route: 065
  6. REQUIP [Suspect]
     Indication: PARKINSON'S DISEASE
     Dosage: 20MG PER DAY
     Route: 048
     Dates: start: 20110110, end: 20110117
  7. MOTILIUM [Concomitant]
     Route: 065
  8. AMAREL [Concomitant]
     Route: 065
  9. NEXIUM [Concomitant]
  10. CRESTOR [Concomitant]
     Route: 065

REACTIONS (4)
  - COMPULSIVE SEXUAL BEHAVIOUR [None]
  - ANGER [None]
  - INCORRECT DOSE ADMINISTERED [None]
  - PATHOLOGICAL GAMBLING [None]
